FAERS Safety Report 8584678 (Version 2)
Quarter: 2020Q3

REPORT INFORMATION
  Report Type: Report from Study
  Country: US (occurrence: US)
  Receive Date: 20120529
  Receipt Date: 20120530
  Transmission Date: 20201104
  Serious: Yes (Hospitalization, Other)
  Sender: FDA-Public Use
  Company Number: US-TEVA-339629USA

PATIENT
  Sex: Female
  Weight: 73 kg

DRUGS (19)
  1. PROPOFOL. [Suspect]
     Active Substance: PROPOFOL
     Indication: ANAESTHESIA
     Dosage: 10MG/ML
     Route: 042
     Dates: start: 20120426
  2. EPHEDRINE. [Suspect]
     Active Substance: EPHEDRINE
     Indication: ANAESTHESIA
     Dosage: 50MG/ML
     Dates: start: 20120426
  3. ERGOCALCIFEROL. [Concomitant]
     Active Substance: ERGOCALCIFEROL
  4. ROCURONIUM BROMIDE. [Suspect]
     Active Substance: ROCURONIUM BROMIDE
     Indication: ANAESTHESIA
     Dosage: 10MG/ML
     Route: 042
     Dates: start: 20120426
  5. UNSPECIFIED INGREDIENT [Suspect]
     Active Substance: UNSPECIFIED INGREDIENT
     Indication: PROPHYLAXIS
     Route: 042
     Dates: start: 20120426, end: 20120426
  6. ATORVASTATIN CALCIUM. [Concomitant]
     Active Substance: ATORVASTATIN CALCIUM
  7. SODIUM BICARBONATE. [Concomitant]
     Active Substance: SODIUM BICARBONATE
  8. MIDAZOLAM HYDROCHLORIDE. [Suspect]
     Active Substance: MIDAZOLAM HYDROCHLORIDE
     Indication: ANAESTHESIA
     Dosage: 1 MG/ML
     Route: 042
     Dates: start: 20120426
  9. CEFAZOLIN [Suspect]
     Active Substance: CEFAZOLIN
     Dosage: 100 MG/ML
     Dates: start: 20120426
  10. FENTANYL. [Suspect]
     Active Substance: FENTANYL
     Indication: ANAESTHESIA
     Dosage: 50MG UG/ML
     Route: 042
     Dates: start: 20120426
  11. ONDANSETRON [Concomitant]
     Active Substance: ONDANSETRON
     Dosage: 2MG/ML
     Dates: start: 20120426
  12. MORPHINE [Suspect]
     Active Substance: MORPHINE
     Indication: ANAESTHESIA
     Dosage: 10MG/ML
     Route: 042
     Dates: start: 20120426
  13. MANNITOL. [Concomitant]
     Active Substance: MANNITOL
     Dosage: 200MG/ML
     Dates: start: 20120426
  14. FUROSEMIDE. [Concomitant]
     Active Substance: FUROSEMIDE
     Dosage: 10MG/ML
     Dates: start: 20120426
  15. LISINOPRIL. [Concomitant]
     Active Substance: LISINOPRIL
  16. MYCOPHENOLATE MOFETIL. [Suspect]
     Active Substance: MYCOPHENOLATE MOFETIL
     Indication: RENAL TRANSPLANT
     Dosage: BID
     Route: 042
     Dates: start: 20120426, end: 20120426
  17. DESFLURANE. [Suspect]
     Active Substance: DESFLURANE
     Indication: ANAESTHESIA
     Dosage: 1DF
     Route: 055
     Dates: start: 20120426
  18. METHYLPREDNISOLONE ACETATE. [Concomitant]
     Active Substance: METHYLPREDNISOLONE ACETATE
     Dosage: 80MG/ML
     Dates: start: 20120426
  19. HYDROCHLOROTHIAZIDE. [Concomitant]
     Active Substance: HYDROCHLOROTHIAZIDE

REACTIONS (1)
  - Encephalopathy [Recovering/Resolving]
